FAERS Safety Report 20445250 (Version 1)
Quarter: 2022Q1

REPORT INFORMATION
  Report Type: Spontaneous
  Country: SG (occurrence: SG)
  Receive Date: 20220208
  Receipt Date: 20220208
  Transmission Date: 20220423
  Serious: Yes (Other)
  Sender: FDA-Public Use
  Company Number: SG-GLAXOSMITHKLINE-SGCH2022APC005131

PATIENT
  Age: 65 Year
  Sex: Female

DRUGS (1)
  1. DICLOFENAC [Suspect]
     Active Substance: DICLOFENAC
     Indication: Product used for unknown indication
     Dosage: UNK

REACTIONS (3)
  - Periorbital oedema [Unknown]
  - Hypoaesthesia [Unknown]
  - Nasal congestion [Unknown]

NARRATIVE: CASE EVENT DATE: 20190101
